FAERS Safety Report 14445956 (Version 4)
Quarter: 2020Q2

REPORT INFORMATION
  Report Type: Spontaneous
  Country: US (occurrence: US)
  Receive Date: 20180126
  Receipt Date: 20200401
  Transmission Date: 20200713
  Serious: Yes (Other)
  Sender: FDA-Public Use
  Company Number: US-PFIZER INC-2018036248

PATIENT
  Age: 39 Year
  Sex: Female

DRUGS (2)
  1. LEVOTHYROXINE. [Concomitant]
     Active Substance: LEVOTHYROXINE
     Indication: HYPOTHYROIDISM
     Dosage: 75 UG, 1X/DAY IN THE MORNING
  2. GENOTROPIN [Suspect]
     Active Substance: SOMATROPIN
     Indication: GROWTH HORMONE DEFICIENCY
     Dosage: 0.5 MG, 1X/DAY IN THE MORNING

REACTIONS (4)
  - Neck injury [Recovering/Resolving]
  - Post concussion syndrome [Recovering/Resolving]
  - Road traffic accident [Recovering/Resolving]
  - Concussion [Recovering/Resolving]

NARRATIVE: CASE EVENT DATE: 20171103
